FAERS Safety Report 8827814 (Version 1)
Quarter: 2012Q4

REPORT INFORMATION
  Report Type: 
  Country: SG (occurrence: SG)
  Receive Date: 20121005
  Receipt Date: 20121005
  Transmission Date: 20130627
  Serious: Yes (Hospitalization, Other)
  Sender: FDA-Public Use
  Company Number: SG-RANBAXY-2012US-60759

PATIENT
  Age: 76 Year
  Sex: Male

DRUGS (2)
  1. CIPROFLOXACIN [Suspect]
     Indication: URINARY TRACT INFECTION
     Dosage: 500 mg, bid
     Route: 048
  2. PROZAC [Concomitant]
     Indication: DEPRESSION
     Dosage: 20 mg, qd
     Route: 065

REACTIONS (1)
  - Cutaneous vasculitis [Recovered/Resolved]
